FAERS Safety Report 10761262 (Version 2)
Quarter: 2015Q1

REPORT INFORMATION
  Report Type: Spontaneous
  Country: JP (occurrence: JP)
  Receive Date: 20150204
  Receipt Date: 20150302
  Transmission Date: 20150721
  Serious: Yes (Hospitalization)
  Sender: FDA-Public Use
  Company Number: JP-SA-2015SA011217

PATIENT
  Age: 83 Year
  Sex: Female

DRUGS (2)
  1. DIGOXIN. [Suspect]
     Active Substance: DIGOXIN
     Indication: CARDIAC FAILURE CHRONIC
     Route: 048
  2. FUROSEMIDE. [Suspect]
     Active Substance: FUROSEMIDE
     Indication: CARDIAC FAILURE CHRONIC
     Route: 065

REACTIONS (7)
  - Respiratory rate decreased [Recovering/Resolving]
  - Heart rate decreased [Recovered/Resolved]
  - Hypokalaemia [Recovering/Resolving]
  - Atrioventricular block [Recovered/Resolved]
  - Toxicity to various agents [Recovering/Resolving]
  - Coma scale abnormal [Recovering/Resolving]
  - Blood pressure decreased [Recovered/Resolved]
